FAERS Safety Report 9773764 (Version 2)
Quarter: 2015Q1

REPORT INFORMATION
  Report Type: Report from Study
  Country: US (occurrence: US)
  Receive Date: 20131219
  Receipt Date: 20150115
  Transmission Date: 20150721
  Serious: Yes (Death)
  Sender: FDA-Public Use
  Company Number: US-ROCHE-1322791

PATIENT
  Sex: Male
  Weight: 54.93 kg

DRUGS (13)
  1. TYLENOL [Concomitant]
     Active Substance: ACETAMINOPHEN
     Route: 065
  2. ALOXI [Concomitant]
     Active Substance: PALONOSETRON HYDROCHLORIDE
     Route: 042
  3. BENADRYL [Concomitant]
     Active Substance: DIPHENHYDRAMINE HYDROCHLORIDE
     Route: 065
  4. BENADRYL [Concomitant]
     Active Substance: DIPHENHYDRAMINE HYDROCHLORIDE
     Route: 065
  5. AVASTIN [Suspect]
     Active Substance: BEVACIZUMAB
     Indication: PANCREATIC CARCINOMA
     Dosage: ON 24/MAR/2011, 30/JUN/2011, 14/JUL/2011, 29/SEP/2011, HE RECEIVED BEVACIZUMAB INJECTION (350 MG).
     Route: 042
     Dates: start: 20110324
  6. CPT-11 [Concomitant]
     Active Substance: IRINOTECAN
     Route: 042
  7. LORAZEPAM. [Concomitant]
     Active Substance: LORAZEPAM
     Route: 042
  8. MITOMYCINE C [Concomitant]
     Route: 042
  9. 5-FU [Concomitant]
     Active Substance: FLUOROURACIL
     Route: 042
  10. ABRAXANE [Concomitant]
     Active Substance: PACLITAXEL
     Route: 042
  11. DEXAMETHASONE. [Concomitant]
     Active Substance: DEXAMETHASONE
     Route: 042
  12. ELOXATIN [Concomitant]
     Active Substance: OXALIPLATIN
     Route: 042
  13. LEUCOVORIN [Concomitant]
     Active Substance: LEUCOVORIN
     Route: 042

REACTIONS (2)
  - Death [Fatal]
  - Off label use [Unknown]
